FAERS Safety Report 7367970-3 (Version None)
Quarter: 2011Q1

REPORT INFORMATION
  Report Type: 
  Country: None (occurrence: None)
  Receive Date: 20110322
  Receipt Date: 20110308
  Transmission Date: 20110831
  Serious: Yes (Other)
  Sender: FDA-Public Use
  Company Number: PHHY2010NL50230

PATIENT
  Sex: Male

DRUGS (14)
  1. ZOMETA [Suspect]
     Dosage: 4 MG/5 ML
     Dates: start: 20100729
  2. BICALUTAMIDE [Concomitant]
     Dosage: UNK
  3. ZOMETA [Suspect]
     Dosage: 4 MG/5 ML
     Dates: start: 20100506
  4. ZOMETA [Suspect]
     Dosage: 4 MG/5 ML
     Dates: start: 20100701
  5. ZOMETA [Suspect]
     Dosage: 4 MG/5 ML
     Dates: start: 20100603
  6. ZOMETA [Suspect]
     Dosage: 4 MG/5 ML
     Dates: start: 20100825
  7. ZOMETA [Suspect]
     Dosage: 4 MG/5 ML
     Route: 042
     Dates: start: 20101021
  8. METOPROLOL [Concomitant]
     Dosage: UNK
  9. ZOMETA [Suspect]
     Dosage: 4 MG/5 ML
     Dates: start: 20100922
  10. ZOMETA [Suspect]
     Dosage: 4 MG/5 ML
     Route: 042
     Dates: start: 20100409
  11. LYRICA [Concomitant]
     Dosage: UNK
  12. PERINDOPRIL [Concomitant]
     Dosage: 4 MG
  13. PERINDOPRIL [Concomitant]
     Dosage: 2 MG
  14. DIAZEPAM [Concomitant]

REACTIONS (9)
  - METASTASIS [None]
  - DIZZINESS [None]
  - OEDEMA PERIPHERAL [None]
  - CONSTIPATION [None]
  - GAIT DISTURBANCE [None]
  - HAEMOGLOBIN DECREASED [None]
  - ARTHRALGIA [None]
  - FATIGUE [None]
  - BACK PAIN [None]
